FAERS Safety Report 5065624-X (Version None)
Quarter: 2006Q3

REPORT INFORMATION
  Report Type: 
  Country: None (occurrence: None)
  Receive Date: 20060725
  Receipt Date: 20060418
  Transmission Date: 20061208
  Serious: No
  Sender: FDA-Public Use
  Company Number: ES200607003124

PATIENT
  Age: 75 Year
  Sex: Male

DRUGS (1)
  1. ZYPREXA [Suspect]
     Dosage: 10 MG,
     Dates: start: 20060201

REACTIONS (2)
  - MALAISE [None]
  - NEUTROPENIA [None]
